FAERS Safety Report 9785464 (Version 2)
Quarter: 2014Q1

REPORT INFORMATION
  Report Type: Spontaneous
  Country: GB (occurrence: GB)
  Receive Date: 20131227
  Receipt Date: 20140328
  Transmission Date: 20141002
  Serious: Yes (Hospitalization, Other)
  Sender: FDA-Public Use
  Company Number: GB-009507513-1312GBR010365

PATIENT
  Age: 27 Year
  Sex: Male

DRUGS (4)
  1. SIMVASTATIN [Suspect]
     Indication: HYPERLIPIDAEMIA
     Dosage: 45 MG, UNK
     Route: 048
     Dates: start: 201212, end: 201312
  2. CLOZARIL [Suspect]
     Indication: SCHIZOPHRENIA
     Dosage: 350 MG, QD
     Route: 048
     Dates: start: 201301
  3. CLOZARIL [Suspect]
     Dosage: UNK
     Route: 048
     Dates: start: 20090213
  4. CLOZARIL [Suspect]
     Dosage: 700 MG, UNK
     Route: 048

REACTIONS (5)
  - Lower limb fracture [Recovering/Resolving]
  - Fall [Unknown]
  - Hyperlipidaemia [Recovering/Resolving]
  - Myoclonus [Unknown]
  - Muscle twitching [Unknown]
